FAERS Safety Report 6642737-X (Version None)
Quarter: 2010Q1

REPORT INFORMATION
  Report Type: 
  Country: None (occurrence: None)
  Receive Date: 20100319
  Receipt Date: 20100309
  Transmission Date: 20100710
  Serious: Yes (Life-Threatening, Hospitalization)
  Sender: FDA-Public Use
  Company Number: AU-PFIZER INC-2010031183

PATIENT
  Age: 35 Year
  Sex: Male
  Weight: 110 kg

DRUGS (1)
  1. CHAMPIX [Suspect]
     Dosage: UNK
     Route: 048
     Dates: start: 20091115, end: 20100115

REACTIONS (10)
  - ABNORMAL DREAMS [None]
  - CHEST PAIN [None]
  - DEPRESSED MOOD [None]
  - HAEMATEMESIS [None]
  - HAEMATOCHEZIA [None]
  - HEADACHE [None]
  - INCREASED APPETITE [None]
  - INJURY [None]
  - INSOMNIA [None]
  - VOMITING [None]
